FAERS Safety Report 13841076 (Version 4)
Quarter: 2019Q1

REPORT INFORMATION
  Report Type: Report from Study
  Country: CA (occurrence: CA)
  Receive Date: 20170807
  Receipt Date: 20190104
  Transmission Date: 20190417
  Serious: Yes (Hospitalization, Other)
  Sender: FDA-Public Use
  Company Number: CA-AMGEN-CANSL2017012553

PATIENT
  Age: 62 Year
  Sex: Male

DRUGS (27)
  1. ENBREL [Suspect]
     Active Substance: ETANERCEPT
     Dosage: 50 MG, QWK
     Route: 058
     Dates: start: 2017, end: 2018
  2. LANTUS [Concomitant]
     Active Substance: INSULIN GLARGINE
     Dosage: 40 UNITS (PREVIOUSLY) NOW-21-20 UNITS BID
  3. ENBREL [Suspect]
     Active Substance: ETANERCEPT
     Dosage: 50 MG, QWK
     Route: 058
     Dates: start: 201810
  4. INSULIN [Concomitant]
     Active Substance: INSULIN NOS
  5. STATEX [Concomitant]
     Dosage: 2 TABS PO AM, 3 TABS PO PM
     Route: 048
  6. COVERSYL [Concomitant]
     Active Substance: PERINDOPRIL
     Dosage: 8 MG, QD
     Route: 048
  7. VIAGRA [Concomitant]
     Active Substance: SILDENAFIL CITRATE
     Dosage: 50 MG, QD
     Route: 048
  8. NITROGLYCERIN. [Concomitant]
     Active Substance: NITROGLYCERIN
     Dosage: UNK
  9. ASA [Concomitant]
     Active Substance: ASPIRIN
     Dosage: 81 MG, QD
     Route: 048
  10. VENLAFAXINE XR [Concomitant]
     Active Substance: VENLAFAXINE HYDROCHLORIDE
     Dosage: 75 MG, QD
     Route: 048
  11. ARTHROTEC [Concomitant]
     Active Substance: DICLOFENAC SODIUM\MISOPROSTOL
     Dosage: UNK
  12. ENBREL [Suspect]
     Active Substance: ETANERCEPT
     Indication: ANKYLOSING SPONDYLITIS
     Dosage: 50 MG, QWK
     Route: 058
     Dates: start: 2004
  13. CRESTOR [Concomitant]
     Active Substance: ROSUVASTATIN CALCIUM
  14. METFORMIN [Concomitant]
     Active Substance: METFORMIN HYDROCHLORIDE
     Dosage: 500 MG, TID
     Route: 048
  15. VITAMIN B12 [Concomitant]
     Active Substance: CYANOCOBALAMIN
  16. HUMALOG [Concomitant]
     Active Substance: INSULIN LISPRO
     Dosage: 34-32-32 UNITS, UNK
  17. CLOPIDOGREL [Concomitant]
     Active Substance: CLOPIDOGREL BISULFATE
     Dosage: 75 MG, QD
     Route: 048
  18. XYLOCAINE [Concomitant]
     Active Substance: LIDOCAINE HYDROCHLORIDE
     Dosage: UNK
  19. JANUVIA [Concomitant]
     Active Substance: SITAGLIPTIN PHOSPHATE
     Dosage: 100 MG, QD
     Route: 048
  20. IRON [Concomitant]
     Active Substance: IRON
  21. ASPIRIN. [Concomitant]
     Active Substance: ASPIRIN
     Dosage: 81 MG, QD
     Route: 048
  22. DEPO-MEDROL [Concomitant]
     Active Substance: METHYLPREDNISOLONE ACETATE
     Dosage: 80 MG, UNK
  23. MORPHINE [Concomitant]
     Active Substance: MORPHINE
     Dosage: 3.5 MG TABLETS TO NOW AT 2-3 TABS A DAY
  24. BISOPROLOL [Concomitant]
     Active Substance: BISOPROLOL
     Dosage: 5 MG, QD
     Route: 048
  25. ROSUVASTATIN. [Concomitant]
     Active Substance: ROSUVASTATIN
     Dosage: 20 MG, QHS
     Route: 048
  26. APO-HYDRO [Concomitant]
     Active Substance: HYDROCHLOROTHIAZIDE
     Dosage: 25 MG, QD
     Route: 048
  27. PANTOPRAZOLE [Concomitant]
     Active Substance: PANTOPRAZOLE
     Dosage: 40 MG, QD
     Route: 048

REACTIONS (17)
  - Memory impairment [Unknown]
  - Ankylosing spondylitis [Unknown]
  - Cataract [Unknown]
  - Non-alcoholic steatohepatitis [Unknown]
  - Periarthritis [Recovering/Resolving]
  - Uvulopalatopharyngoplasty [Unknown]
  - Haemoglobin decreased [Recovering/Resolving]
  - Ligament rupture [Unknown]
  - Prostatitis [Not Recovered/Not Resolved]
  - Joint range of motion decreased [Unknown]
  - Sepsis [Unknown]
  - Cerebellar syndrome [Unknown]
  - Encephalopathy [Recovering/Resolving]
  - Hepatic cirrhosis [Unknown]
  - Rotator cuff syndrome [Unknown]
  - Dysmetria [Unknown]
  - Kyphosis [Unknown]

NARRATIVE: CASE EVENT DATE: 201701
